FAERS Safety Report 21664724 (Version 1)
Quarter: 2022Q4

REPORT INFORMATION
  Report Type: Spontaneous
  Country: BE (occurrence: BE)
  Receive Date: 20221130
  Receipt Date: 20221130
  Transmission Date: 20230113
  Serious: Yes (Life-Threatening, Hospitalization)
  Sender: FDA-Public Use
  Company Number: BE-PFIZER INC-2020177298

PATIENT
  Age: 53 Year
  Sex: Male

DRUGS (8)
  1. LINEZOLID [Suspect]
     Active Substance: LINEZOLID
     Indication: Mycobacterium abscessus infection
     Dosage: UNK (WITH AMIKACIN AND TIGECYCLINE)
     Route: 065
     Dates: start: 20190308, end: 20190322
  2. VITAMIN K [Suspect]
     Active Substance: PHYTONADIONE
     Indication: Coagulopathy
     Dosage: UNK
     Route: 042
  3. TIGECYCLINE [Suspect]
     Active Substance: TIGECYCLINE
     Indication: Mycobacterium abscessus infection
     Dosage: 100 MILLIGRAM, QD, 50 MG, 2X/DAY
     Route: 065
     Dates: start: 20190308, end: 20190322
  4. TIGECYCLINE [Suspect]
     Active Substance: TIGECYCLINE
     Dosage: 100 MILLIGRAM, QD, 50 MG, 2X/DAY
     Route: 065
     Dates: start: 20190323, end: 20190408
  5. AMIKACIN [Concomitant]
     Active Substance: AMIKACIN
     Indication: Mycobacterium abscessus infection
     Dosage: UNK (WITH MOXIFLOXACINE AND MEROPENEM)
     Route: 065
     Dates: start: 20190226, end: 20190307
  6. AMIKACIN [Concomitant]
     Active Substance: AMIKACIN
     Dosage: UNK (WITH LINEZOLID AND TIGECYCLINE)
     Route: 065
     Dates: start: 20190308, end: 20190322
  7. AMIKACIN [Concomitant]
     Active Substance: AMIKACIN
     Dosage: UNK (WITH TIGECYCLINE AND CLOFAZIMINE)
     Route: 065
     Dates: start: 20190323, end: 20190408
  8. CLOFAZIMINE [Concomitant]
     Active Substance: CLOFAZIMINE
     Indication: Mycobacterium abscessus infection
     Dosage: UNK (WITH AMIKACIN AND TIGECYCLINE)
     Route: 065
     Dates: start: 20190323, end: 20190408

REACTIONS (5)
  - Coagulopathy [Recovered/Resolved]
  - Drug ineffective [Recovering/Resolving]
  - Condition aggravated [Recovered/Resolved]
  - Thrombocytopenia [Recovering/Resolving]
  - Transaminases increased [Recovered/Resolved]
